FAERS Safety Report 24961608 (Version 1)
Quarter: 2025Q1

REPORT INFORMATION
  Report Type: Spontaneous
  Country: US (occurrence: US)
  Receive Date: 20250212
  Receipt Date: 20250212
  Transmission Date: 20250409
  Serious: No
  Sender: AMGEN
  Company Number: US-AMGEN-USASP2025024666

PATIENT
  Sex: Male

DRUGS (1)
  1. REPATHA [Suspect]
     Active Substance: EVOLOCUMAB
     Indication: Product used for unknown indication
     Dosage: UNK, Q2WK, (EVERY 15 DAY )
     Route: 065
     Dates: start: 20240515

REACTIONS (3)
  - Eye pruritus [Not Recovered/Not Resolved]
  - Toothache [Not Recovered/Not Resolved]
  - Eye swelling [Unknown]
